FAERS Safety Report 4562396-X (Version None)
Quarter: 2005Q1

REPORT INFORMATION
  Report Type: 
  Country: None (occurrence: None)
  Receive Date: 20050127
  Receipt Date: 20040430
  Transmission Date: 20050727
  Serious: No
  Sender: FDA-Public Use
  Company Number: US-BRISTOL-MYERS SQUIBB COMPANY-12584462

PATIENT

DRUGS (2)
  1. KENALOG [Suspect]
     Indication: SEASONAL ALLERGY
     Route: 051
  2. ALLEGRA [Suspect]
     Route: 048
     Dates: start: 20040430

REACTIONS (3)
  - FEELING ABNORMAL [None]
  - HEADACHE [None]
  - INFLUENZA LIKE ILLNESS [None]
